FAERS Safety Report 4630419-5 (Version None)
Quarter: 2005Q2

REPORT INFORMATION
  Report Type: 
  Country: None (occurrence: None)
  Receive Date: 20050406
  Receipt Date: 20050322
  Transmission Date: 20051028
  Serious: Yes (Hospitalization)
  Sender: FDA-Public Use
  Company Number: BRO-008456

PATIENT
  Age: 75 Year
  Sex: Male

DRUGS (2)
  1. IOPAMIDOL-300 [Suspect]
     Indication: COMPUTERISED TOMOGRAM
     Dosage: IV
     Route: 042
     Dates: start: 20050127, end: 20050127
  2. ANTIEPILEPTICS [Concomitant]

REACTIONS (3)
  - ACUTE RESPIRATORY FAILURE [None]
  - EXANTHEM [None]
  - INTERSTITIAL LUNG DISEASE [None]
